FAERS Safety Report 21643270 (Version 2)
Quarter: 2022Q4

REPORT INFORMATION
  Report Type: Spontaneous
  Country: AU (occurrence: AU)
  Receive Date: 20221125
  Receipt Date: 20221128
  Transmission Date: 20230112
  Serious: Yes (Other)
  Sender: FDA-Public Use
  Company Number: AU-009507513-2211AUS007234

PATIENT
  Age: 63 Year
  Sex: Male

DRUGS (3)
  1. KEYTRUDA [Suspect]
     Active Substance: PEMBROLIZUMAB
     Indication: Non-small cell lung cancer
     Dosage: UNK
     Dates: start: 20211019
  2. GEMCITABINE [Suspect]
     Active Substance: GEMCITABINE
     Indication: Non-small cell lung cancer
     Dosage: UNK
     Dates: start: 20211019
  3. CARBOPLATIN [Suspect]
     Active Substance: CARBOPLATIN
     Indication: Non-small cell lung cancer
     Dosage: UNK
     Dates: start: 20211019

REACTIONS (9)
  - Malignant neoplasm progression [Unknown]
  - Cytopenia [Unknown]
  - Bronchial obstruction [Unknown]
  - Fatigue [Unknown]
  - Peroneal nerve palsy [Unknown]
  - Muscular weakness [Unknown]
  - Arthralgia [Unknown]
  - Haemoptysis [Unknown]
  - Drug intolerance [Unknown]
